FAERS Safety Report 18458227 (Version 1)
Quarter: 2020Q4

REPORT INFORMATION
  Report Type: Spontaneous
  Country: FR (occurrence: FR)
  Receive Date: 20201103
  Receipt Date: 20201103
  Transmission Date: 20210114
  Serious: Yes (Life-Threatening, Other)
  Sender: FDA-Public Use
  Company Number: FR-SUN PHARMACEUTICAL INDUSTRIES LTD-2020RR-266153

PATIENT
  Age: 20 Year
  Sex: Female
  Weight: 62 kg

DRUGS (9)
  1. QUETIAPINE. [Suspect]
     Active Substance: QUETIAPINE
     Indication: PERSONALITY DISORDER
     Dosage: 300 MILLIGRAM, DAILY
     Route: 048
     Dates: end: 20200728
  2. CYAMEMAZINE (TARTRATE DE) [Suspect]
     Active Substance: CYAMEMAZINE
     Indication: MIXED ANXIETY AND DEPRESSIVE DISORDER
     Dosage: 12.5 MILLIGRAMS, UNK
     Route: 048
     Dates: end: 20200728
  3. DIAZEPAM. [Suspect]
     Active Substance: DIAZEPAM
     Indication: MIXED ANXIETY AND DEPRESSIVE DISORDER
     Dosage: 10 MILLIGRAM, DAILY
     Route: 048
     Dates: end: 20200728
  4. DIAZEPAM. [Suspect]
     Active Substance: DIAZEPAM
     Dosage: 10 MILLIGRAM, DAILY
     Route: 048
     Dates: end: 20200728
  5. ARIPIPRAZOLE. [Suspect]
     Active Substance: ARIPIPRAZOLE
     Indication: PERSONALITY DISORDER
     Dosage: 20 MILLIGRAM, DAILY
     Route: 048
  6. TROPATEPINE (CHLORHYDRATE DE) [Concomitant]
     Active Substance: TROPATEPINE HYDROCHLORIDE
     Indication: EXTRAPYRAMIDAL DISORDER
     Dosage: 10 MILLIGRAM, DAILY
     Route: 048
  7. SERTRALINE [Suspect]
     Active Substance: SERTRALINE HYDROCHLORIDE
     Indication: MIXED ANXIETY AND DEPRESSIVE DISORDER
     Dosage: 100 MILLIGRAM, DAILY
     Route: 048
     Dates: end: 20200728
  8. LORMETAZEPAM [Suspect]
     Active Substance: LORMETAZEPAM
     Indication: MIXED ANXIETY AND DEPRESSIVE DISORDER
     Dosage: 1 MILLIGRAM, UNK
     Route: 048
  9. ANETHOLETRITHIONE [Concomitant]
     Active Substance: ANETHOLTRITHION
     Indication: APTYALISM
     Dosage: 150 MILLIGRAM, DAILY
     Route: 048

REACTIONS (1)
  - Suicide attempt [Recovering/Resolving]

NARRATIVE: CASE EVENT DATE: 20200728
